FAERS Safety Report 24017868 (Version 2)
Quarter: 2024Q3

REPORT INFORMATION
  Report Type: Spontaneous
  Country: US (occurrence: US)
  Receive Date: 20240627
  Receipt Date: 20240710
  Transmission Date: 20241017
  Serious: Yes (Other)
  Sender: TEVA
  Company Number: US-TEVA-VS-3212081

PATIENT
  Age: 68 Year
  Sex: Female

DRUGS (2)
  1. WARFARIN [Suspect]
     Active Substance: WARFARIN
     Indication: Antiphospholipid syndrome
     Dosage: 7.5MG DAILY EXCEPT FOR 3.75MG ON FRIDAYS,?THE DOSE WAS REDUCED INITIALLY BY 15% AND 7.7% AND FURT...
     Route: 065
  2. PAXLOVID [Suspect]
     Active Substance: NIRMATRELVIR\RITONAVIR
     Indication: COVID-19
     Dosage: (150MG X 2) (100MG THERAPY PACK).?HERAPY WAS CONTINUED AND COURSE WAS COMPLETED
     Route: 065

REACTIONS (2)
  - Anticoagulation drug level above therapeutic [Recovered/Resolved]
  - Drug interaction [Unknown]
